FAERS Safety Report 11631792 (Version 1)
Quarter: 2015Q4

REPORT INFORMATION
  Report Type: Spontaneous
  Country: DE (occurrence: DE)
  Receive Date: 20151015
  Receipt Date: 20151015
  Transmission Date: 20160304
  Serious: No
  Sender: FDA-Public Use
  Company Number: DE-GLENMARK PHARMACEUTICALS INC, USA.-2015GMK017023

PATIENT
  Age: 45 Year
  Sex: Male

DRUGS (5)
  1. PREGABALIN GLENMARK 75 MG HARTKAPSELN [Suspect]
     Active Substance: PREGABALIN
     Indication: NEURALGIA
     Dosage: 25 MG, UNK
  2. FATTY ACIDS NOS [Concomitant]
     Indication: PRODUCT USED FOR UNKNOWN INDICATION
     Dosage: UNK
     Route: 065
  3. GABAPENTIN. [Suspect]
     Active Substance: GABAPENTIN
     Indication: DRUG WITHDRAWAL SYNDROME
     Dosage: 3200 MG, QD
     Route: 065
  4. OXYCODONE [Concomitant]
     Active Substance: OXYCODONE
     Indication: RHEUMATOID ARTHRITIS
  5. PREGABALIN GLENMARK 75 MG HARTKAPSELN [Suspect]
     Active Substance: PREGABALIN
     Dosage: 600 MG, DAILY
     Route: 065

REACTIONS (3)
  - Dizziness [Unknown]
  - Hypertriglyceridaemia [Recovering/Resolving]
  - Off label use [Unknown]
